FAERS Safety Report 5940861-8 (Version None)
Quarter: 2008Q4

REPORT INFORMATION
  Report Type: 
  Country: None (occurrence: None)
  Receive Date: 20081104
  Receipt Date: 20081022
  Transmission Date: 20090506
  Serious: Yes (Death, Hospitalization, Other)
  Sender: FDA-Public Use
  Company Number: US-ELI_LILLY_AND_COMPANY-US200810005492

PATIENT
  Sex: Male

DRUGS (6)
  1. FORTEO [Suspect]
     Indication: MULTIPLE FRACTURES
     Dosage: 20 UG, DAILY (1/D)
     Dates: start: 20070101
  2. CYMBALTA [Suspect]
  3. TENORMIN [Concomitant]
  4. DIGOXIN [Concomitant]
  5. HYDREA [Concomitant]
  6. ASCORBIC ACID [Concomitant]

REACTIONS (8)
  - ALTERED STATE OF CONSCIOUSNESS [None]
  - ASPIRATION [None]
  - CARDIAC FAILURE CONGESTIVE [None]
  - CARDIOVASCULAR DISORDER [None]
  - DYSSTASIA [None]
  - PNEUMONIA [None]
  - RENAL DISORDER [None]
  - SEPSIS [None]
